FAERS Safety Report 18584894 (Version 1)
Quarter: 2020Q4

REPORT INFORMATION
  Report Type: Spontaneous
  Country: US (occurrence: US)
  Receive Date: 20201204
  Receipt Date: 20201204
  Transmission Date: 20210114
  Serious: Yes (Hospitalization)
  Sender: FDA-Public Use
  Company Number: None

PATIENT
  Age: 73 Year
  Sex: Male
  Weight: 104.5 kg

DRUGS (2)
  1. BAMLANIVIMAB. [Suspect]
     Active Substance: BAMLANIVIMAB
     Indication: COVID-19
     Dosage: ?          OTHER FREQUENCY:ONE TIME;?
     Route: 042
  2. MAGNESIUM OXIDE. [Concomitant]
     Active Substance: MAGNESIUM OXIDE
     Dates: start: 20201123, end: 20201123

REACTIONS (4)
  - Cough [None]
  - Asthenia [None]
  - Troponin increased [None]
  - Acute kidney injury [None]

NARRATIVE: CASE EVENT DATE: 20201124
